FAERS Safety Report 10086782 (Version 3)
Quarter: 2014Q2

REPORT INFORMATION
  Report Type: Spontaneous
  Country: US (occurrence: US)
  Receive Date: 20140418
  Receipt Date: 20140523
  Transmission Date: 20141212
  Serious: Yes (Hospitalization)
  Sender: FDA-Public Use
  Company Number: US-INCYTE CORPORATION-2014IN001032

PATIENT
  Age: 50 Year
  Sex: Female

DRUGS (5)
  1. JAKAFI [Suspect]
     Dosage: 15 MG, BID
     Route: 048
     Dates: start: 20140218, end: 20140414
  2. JAKAFI [Suspect]
     Dosage: 20 MG, BID
     Route: 048
     Dates: start: 20140416
  3. HYDROXYUREA [Concomitant]
     Dosage: UNK
     Dates: start: 201402
  4. COUMADIN                           /00014802/ [Concomitant]
  5. BUTRANS   PATCH                         /00444001/ [Concomitant]

REACTIONS (9)
  - Vomiting [Recovered/Resolved]
  - Splenomegaly [Recovered/Resolved]
  - Platelet count increased [Recovered/Resolved]
  - Alopecia [Recovered/Resolved]
  - Rash [Recovered/Resolved]
  - Pruritus [Unknown]
  - Nausea [Unknown]
  - Constipation [Unknown]
  - Drug ineffective [Unknown]
